FAERS Safety Report 12757492 (Version 1)
Quarter: 2016Q3

REPORT INFORMATION
  Report Type: Spontaneous
  Country: FR (occurrence: FR)
  Receive Date: 20160919
  Receipt Date: 20160919
  Transmission Date: 20161109
  Serious: Yes (Hospitalization)
  Sender: FDA-Public Use
  Company Number: FR-ROCHE-1830907

PATIENT
  Age: 74 Year
  Sex: Female

DRUGS (9)
  1. LIPANTHYL [Concomitant]
     Active Substance: FENOFIBRATE
     Dosage: LONG-TERM TREATMENT
     Route: 048
  2. KARDEGIC [Concomitant]
     Active Substance: ASPIRIN LYSINE
     Dosage: LONG-TERM TREATMENT
     Route: 048
  3. IMOVANE [Concomitant]
     Active Substance: ZOPICLONE
     Dosage: LONG-TERM TREATMENT
     Route: 048
  4. CHLORAMINOPHENE [Concomitant]
     Active Substance: CHLORAMBUCIL
     Route: 065
     Dates: start: 20141223
  5. MABTHERA [Suspect]
     Active Substance: RITUXIMAB
     Indication: CHRONIC LYMPHOCYTIC LEUKAEMIA
     Route: 041
     Dates: start: 20141218
  6. NIFLURIL GEL [Concomitant]
     Dosage: LONG-TERM TREATMENT, AS REQUIRED
     Route: 003
  7. LEVOTHYROX [Concomitant]
     Active Substance: LEVOTHYROXINE
     Indication: BASEDOW^S DISEASE
     Dosage: LONG-TERM TREATMENT
     Route: 048
  8. BENDAMUSTINE [Suspect]
     Active Substance: BENDAMUSTINE
     Indication: CHRONIC LYMPHOCYTIC LEUKAEMIA
     Route: 041
     Dates: start: 20150212
  9. COVERSYL [Concomitant]
     Active Substance: PERINDOPRIL
     Dosage: LONG-TERM TREATMENT
     Route: 048

REACTIONS (3)
  - Dermatitis exfoliative [Recovered/Resolved]
  - Eosinophilia [Recovered/Resolved]
  - Hyperthermia [Recovered/Resolved]

NARRATIVE: CASE EVENT DATE: 20150312
